FAERS Safety Report 22262819 (Version 1)
Quarter: 2023Q2

REPORT INFORMATION
  Report Type: Spontaneous
  Country: US (occurrence: US)
  Receive Date: 20230428
  Receipt Date: 20230428
  Transmission Date: 20230721
  Serious: Yes (Hospitalization, Other)
  Sender: FDA-Public Use
  Company Number: US-RECORDATI RARE DISEASE INC.-2023002525

PATIENT

DRUGS (1)
  1. CYSTADROPS [Suspect]
     Active Substance: CYSTEAMINE HYDROCHLORIDE
     Indication: Cystinosis
     Dosage: 2 GTT DROPS, QID
     Route: 047

REACTIONS (4)
  - Infection [Unknown]
  - Urinary tract infection [Unknown]
  - Kidney infection [Unknown]
  - Seizure [Unknown]

NARRATIVE: CASE EVENT DATE: 20230421
